FAERS Safety Report 4366003-0 (Version None)
Quarter: 2004Q2

REPORT INFORMATION
  Report Type: 
  Country: None (occurrence: None)
  Receive Date: 20040524
  Receipt Date: 20040219
  Transmission Date: 20050107
  Serious: No
  Sender: FDA-Public Use
  Company Number: SU-2004-002160

PATIENT
  Age: 58 Year
  Sex: Female
  Weight: 76.2043 kg

DRUGS (6)
  1. BENICAR [Suspect]
     Indication: HYPERTENSION
     Dosage: 20 MG QD PO
     Route: 048
     Dates: start: 20020513
  2. ZOLOFT [Concomitant]
  3. LACTULON [Concomitant]
  4. PRAVACHOL [Concomitant]
  5. RHINOCORT [Concomitant]
  6. ASPIRIN [Concomitant]

REACTIONS (1)
  - ORTHOSTATIC HYPOTENSION [None]
